FAERS Safety Report 5396051-3 (Version None)
Quarter: 2007Q3

REPORT INFORMATION
  Report Type: 
  Country: None (occurrence: None)
  Receive Date: 20070724
  Receipt Date: 20070712
  Transmission Date: 20080115
  Serious: Yes (Hospitalization, Other)
  Sender: FDA-Public Use
  Company Number: US-PFIZER INC-2007059319

PATIENT
  Sex: Male
  Weight: 81 kg

DRUGS (7)
  1. CHANTIX [Suspect]
     Indication: EX-SMOKER
     Route: 048
     Dates: start: 20070301, end: 20070101
  2. SERTRALINE [Suspect]
     Indication: APPETITE DISORDER
     Dates: start: 20070521, end: 20070101
  3. PERCOCET [Concomitant]
  4. VICODIN [Concomitant]
  5. LIPITOR [Concomitant]
  6. ZETIA [Concomitant]
  7. VALIUM [Concomitant]

REACTIONS (5)
  - BONE DISORDER [None]
  - DRUG INEFFECTIVE FOR UNAPPROVED INDICATION [None]
  - INTERVERTEBRAL DISC OPERATION [None]
  - NAUSEA [None]
  - WEIGHT DECREASED [None]
